FAERS Safety Report 22937564 (Version 2)
Quarter: 2023Q4

REPORT INFORMATION
  Report Type: Spontaneous
  Country: CA (occurrence: CA)
  Receive Date: 20230913
  Receipt Date: 20231102
  Transmission Date: 20240109
  Serious: Yes (Other)
  Sender: FDA-Public Use
  Company Number: CA-BEIGENE-BGN-2023-009940

PATIENT

DRUGS (1)
  1. BRUKINSA [Suspect]
     Active Substance: ZANUBRUTINIB
     Indication: Product used for unknown indication
     Dosage: UNK
     Dates: start: 2023

REACTIONS (4)
  - Cardiac failure [Unknown]
  - Renal impairment [Unknown]
  - Dysuria [Unknown]
  - Blood creatinine increased [Unknown]
